FAERS Safety Report 4923705-2 (Version None)
Quarter: 2006Q1

REPORT INFORMATION
  Report Type: 
  Country: None (occurrence: None)
  Receive Date: 20060227
  Receipt Date: 20050426
  Transmission Date: 20060701
  Serious: Yes (Hospitalization)
  Sender: FDA-Public Use
  Company Number: US-MERCK-0504USA04872

PATIENT
  Age: 46 Year
  Sex: Male
  Weight: 127 kg

DRUGS (4)
  1. VIOXX [Suspect]
     Indication: ARTHRITIS
     Route: 048
     Dates: start: 20000906, end: 20030201
  2. VIOXX [Suspect]
     Route: 048
     Dates: start: 20000906, end: 20030201
  3. VIOXX [Suspect]
     Route: 048
     Dates: start: 20000906, end: 20030201
  4. VIOXX [Suspect]
     Route: 048
     Dates: start: 20000906, end: 20030201

REACTIONS (18)
  - ABDOMINAL PAIN [None]
  - ANGINA PECTORIS [None]
  - ARTERIAL OCCLUSIVE DISEASE [None]
  - ARTERIOSCLEROSIS CORONARY ARTERY [None]
  - CORONARY ARTERY DISEASE [None]
  - DIARRHOEA [None]
  - DYSPNOEA [None]
  - MUSCULOSKELETAL CHEST PAIN [None]
  - MYOCARDIAL INFARCTION [None]
  - OVERDOSE [None]
  - PHARYNGITIS [None]
  - PROSTATE INDURATION [None]
  - RECTAL HAEMORRHAGE [None]
  - TACHYCARDIA [None]
  - THROMBOCYTOPENIA [None]
  - VENTRICULAR EXTRASYSTOLES [None]
  - VENTRICULAR TACHYCARDIA [None]
  - VOMITING [None]
